FAERS Safety Report 8491084 (Version 2)
Quarter: 2012Q4

REPORT INFORMATION
  Report Type: 
  Country: JP (occurrence: JP)
  Receive Date: 20120403
  Receipt Date: 20121003
  Transmission Date: 20130627
  Serious: Yes (Life-Threatening, Hospitalization)
  Sender: FDA-Public Use
  Company Number: JP-SANOFI-AVENTIS-2012SA015292

PATIENT
  Age: 74 Year
  Sex: Male

DRUGS (8)
  1. TAXOTERE [Suspect]
     Indication: PROSTATE CANCER
     Route: 042
     Dates: start: 20110203, end: 20111013
  2. TAXOTERE [Suspect]
     Indication: PROSTATE CANCER
     Route: 065
     Dates: end: 201112
  3. ESTRACYT [Suspect]
     Indication: DRUG USE FOR UNKNOWN INDICATION
     Dosage: dose: 156.7 X 2 X 2 times
     Route: 048
     Dates: start: 20091008, end: 20110131
  4. ESTRACYT [Suspect]
     Indication: DRUG USE FOR UNKNOWN INDICATION
     Dosage: dose: 156.7 X 2 X 2 times/ 3 days
     Route: 048
     Dates: start: 20110203, end: 20111015
  5. DEXAMETHASONE [Suspect]
     Indication: DRUG USE FOR UNKNOWN INDICATION
     Route: 048
     Dates: start: 20110203
  6. LEUPLIN [Concomitant]
     Dates: start: 19990810, end: 20110114
  7. PROSTAL [Concomitant]
  8. CASODEX [Concomitant]

REACTIONS (4)
  - Pulmonary infarction [Recovered/Resolved]
  - Dyspnoea [Recovered/Resolved]
  - Venous thrombosis limb [Recovered/Resolved]
  - Oedema peripheral [Recovered/Resolved]
